FAERS Safety Report 21355748 (Version 1)
Quarter: 2022Q3

REPORT INFORMATION
  Report Type: Spontaneous
  Country: US (occurrence: US)
  Receive Date: 20220920
  Receipt Date: 20220920
  Transmission Date: 20221027
  Serious: No
  Sender: FDA-Public Use
  Company Number: US-THERAPEUTICSMD-2022TMD00221

PATIENT
  Sex: Female

DRUGS (1)
  1. ANNOVERA [Suspect]
     Active Substance: ETHINYL ESTRADIOL\SEGESTERONE ACETATE
     Dosage: 1 VAGINAL RING, 21 DAYS IN 7 DAYS OUT
     Route: 067
     Dates: start: 202105

REACTIONS (1)
  - Intermenstrual bleeding [Not Recovered/Not Resolved]
